FAERS Safety Report 20001088 (Version 1)
Quarter: 2021Q4

REPORT INFORMATION
  Report Type: Spontaneous
  Country: CN (occurrence: CN)
  Receive Date: 20211027
  Receipt Date: 20211027
  Transmission Date: 20220303
  Serious: Yes (Hospitalization)
  Sender: FDA-Public Use
  Company Number: CN-BOEHRINGERINGELHEIM-2021-BI-134269

PATIENT
  Age: 65 Year
  Sex: Female
  Weight: 60 kg

DRUGS (6)
  1. JARDIANCE [Suspect]
     Active Substance: EMPAGLIFLOZIN
     Indication: Diabetes mellitus
     Route: 048
     Dates: start: 2021
  2. HUMULIN R [Suspect]
     Active Substance: INSULIN HUMAN
     Indication: Diabetes mellitus
     Route: 058
  3. GLUCOBAY [Concomitant]
     Active Substance: ACARBOSE
     Indication: Diabetes mellitus
     Dosage: 2 TABLET IN THE MORNING,  2 TABLET IN THE NOON, 2 TABLET IN THE EVENING
     Route: 048
     Dates: start: 2016
  4. GLUCOPHAGE [Concomitant]
     Active Substance: METFORMIN HYDROCHLORIDE
     Indication: Diabetes mellitus
     Dosage: 4 TA IN TOTAL (BEFORE BED, MORNING, NOON , EVENING)
     Route: 048
     Dates: start: 2016
  5. JANUVIA [Concomitant]
     Active Substance: SITAGLIPTIN PHOSPHATE
     Indication: Diabetes mellitus
     Dosage: 1 TABLET IN THE NIGHT
     Route: 048
     Dates: start: 2016
  6. INSULIN NOS [Suspect]
     Active Substance: INSULIN NOS
     Indication: Diabetes mellitus
     Dosage: MORNING: 20 UNIT?NIGHT:8 UNIT
     Route: 058
     Dates: start: 20211008

REACTIONS (5)
  - Blood glucose abnormal [Recovering/Resolving]
  - Blood glucose abnormal [Recovering/Resolving]
  - Product use issue [Recovered/Resolved]
  - Visual impairment [Recovering/Resolving]
  - Weight increased [Recovered/Resolved]

NARRATIVE: CASE EVENT DATE: 20210101
